FAERS Safety Report 6551552-7 (Version None)
Quarter: 2010Q1

REPORT INFORMATION
  Report Type: 
  Country: None (occurrence: None)
  Receive Date: 20100126
  Receipt Date: 20100114
  Transmission Date: 20100710
  Serious: Yes (Other)
  Sender: FDA-Public Use
  Company Number: PHEH2008US06157

PATIENT
  Sex: Female

DRUGS (15)
  1. ESTRADERM [Suspect]
  2. CLIMARA [Suspect]
  3. PAXIL [Concomitant]
  4. VIOXX [Concomitant]
  5. FEMARA [Concomitant]
     Dosage: UNK
     Dates: start: 20060818
  6. DEXAMETHAZONE-PIX [Concomitant]
  7. TAXOL [Concomitant]
  8. PROGESTERONE [Concomitant]
     Dosage: 5 MG, UNK
  9. DECADRON                                /CAN/ [Concomitant]
  10. FEMARA [Concomitant]
  11. PROVERA [Concomitant]
  12. FOSAMAX [Concomitant]
  13. BONIVA [Concomitant]
     Dosage: 150 MG, QMO
  14. ADRIAMYCIN PFS [Concomitant]
  15. CYCLOPHOSPHAMIDE [Concomitant]

REACTIONS (29)
  - ANXIETY [None]
  - BREAST CANCER [None]
  - BREAST LUMP REMOVAL [None]
  - BREAST MASS [None]
  - BREAST PAIN [None]
  - BRONCHITIS [None]
  - CEREBRAL ISCHAEMIA [None]
  - CHEMOTHERAPY [None]
  - DEPRESSION [None]
  - EMOTIONAL DISORDER [None]
  - FACIAL PALSY [None]
  - FIBROCYSTIC BREAST DISEASE [None]
  - HEMIPARESIS [None]
  - HOT FLUSH [None]
  - HYPOAESTHESIA [None]
  - INDURATION [None]
  - IRON DEFICIENCY [None]
  - LYMPHADENECTOMY [None]
  - MEMORY IMPAIRMENT [None]
  - METASTASES TO LYMPH NODES [None]
  - NEUROPATHY PERIPHERAL [None]
  - OSTEOARTHRITIS [None]
  - PAIN [None]
  - PHYSICAL DISABILITY [None]
  - RADIOTHERAPY [None]
  - SCAR [None]
  - SKIN REACTION [None]
  - VENOUS ANGIOMA OF BRAIN [None]
  - VITAMIN B12 DEFICIENCY [None]
